FAERS Safety Report 6489873-9 (Version None)
Quarter: 2009Q4

REPORT INFORMATION
  Report Type: 
  Country: None (occurrence: None)
  Receive Date: 20091210
  Receipt Date: 20091210
  Transmission Date: 20100525
  Serious: Yes (Other)
  Sender: FDA-Public Use
  Company Number: None

PATIENT
  Age: 42 Year
  Sex: Female
  Weight: 56.6996 kg

DRUGS (1)
  1. ZICAM EXTREME CONGESTION RELIEF OXYMETAZOLINE HCI ZICAM 0.05% [Suspect]
     Indication: SINUS CONGESTION
     Dosage: 1 1 NASAL
     Route: 045
     Dates: start: 20091206, end: 20091206

REACTIONS (1)
  - ANOSMIA [None]
